FAERS Safety Report 6909048-6 (Version None)
Quarter: 2010Q3

REPORT INFORMATION
  Report Type: 
  Country: None (occurrence: None)
  Receive Date: 20100708
  Receipt Date: 20091209
  Transmission Date: 20110219
  Serious: Yes (Other)
  Sender: FDA-Public Use
  Company Number: 2007096629

PATIENT
  Age: 47 Year
  Sex: Male
  Weight: 81.6 kg

DRUGS (10)
  1. CHANTIX [Suspect]
     Indication: SMOKING CESSATION THERAPY
     Dosage: 0.5 MG, 1X/DAY
     Dates: start: 20060101
  2. CHANTIX [Suspect]
     Indication: SMOKING CESSATION THERAPY
     Dosage: 0.5 MG, 1X/DAY
     Dates: start: 20060101
  3. CYMBALTA [Concomitant]
  4. LIBRIUM [Concomitant]
  5. NABUMETONE [Concomitant]
  6. ZETIA [Concomitant]
  7. SIMVASTATIN [Concomitant]
  8. PRILOSEC [Concomitant]
  9. ZOCOR [Concomitant]
  10. OXYCODONE HCL [Concomitant]

REACTIONS (7)
  - ANGER [None]
  - ANXIETY [None]
  - DECREASED APPETITE [None]
  - DRUG INEFFECTIVE [None]
  - FEELING COLD [None]
  - NERVOUSNESS [None]
  - SUICIDAL IDEATION [None]
